FAERS Safety Report 6028124-6 (Version None)
Quarter: 2009Q1

REPORT INFORMATION
  Report Type: 
  Country: None (occurrence: None)
  Receive Date: 20090105
  Receipt Date: 20090105
  Transmission Date: 20090719
  Serious: Yes (Other)
  Sender: FDA-Public Use
  Company Number: None

PATIENT
  Age: 78 Year
  Sex: Male
  Weight: 77.1115 kg

DRUGS (1)
  1. PROPAFENONE HCL [Suspect]
     Indication: ATRIAL FIBRILLATION
     Dosage: 225 MG. 3 X PER DAY
     Dates: start: 20080401, end: 20081101

REACTIONS (6)
  - DIARRHOEA [None]
  - FALL [None]
  - HEART RATE DECREASED [None]
  - MALAISE [None]
  - PRODUCT QUALITY ISSUE [None]
  - SYNCOPE [None]
